FAERS Safety Report 10725213 (Version 1)
Quarter: 2015Q1

REPORT INFORMATION
  Report Type: Spontaneous
  Country: US (occurrence: US)
  Receive Date: 20150120
  Receipt Date: 20150120
  Transmission Date: 20150721
  Serious: No
  Sender: FDA-Public Use
  Company Number: US-TEVA-534787USA

PATIENT
  Sex: Female

DRUGS (1)
  1. ENJUVIA [Suspect]
     Active Substance: ESTROGENS, CONJUGATED SYNTHETIC B
     Indication: MENOPAUSAL SYMPTOMS
     Dosage: 0.45 (UNITS AND FREQUENCY NOT PROVIDED)
     Route: 065
     Dates: start: 20150111, end: 20150114

REACTIONS (6)
  - Diarrhoea [Unknown]
  - Feeling cold [Unknown]
  - Palpitations [Recovering/Resolving]
  - Headache [Not Recovered/Not Resolved]
  - Nausea [Recovering/Resolving]
  - Tremor [Recovering/Resolving]
